FAERS Safety Report 9380152 (Version 1)
Quarter: 2013Q3

REPORT INFORMATION
  Report Type: Spontaneous
  Country: AT (occurrence: AT)
  Receive Date: 20130702
  Receipt Date: 20130702
  Transmission Date: 20140515
  Serious: Yes (Death, Life-Threatening, Other)
  Sender: FDA-Public Use
  Company Number: PHHY2013AT066520

PATIENT
  Age: 48 Year
  Sex: Female

DRUGS (10)
  1. CICLOSPORIN [Suspect]
     Indication: RENAL TRANSPLANT
  2. CARBOPLATIN [Suspect]
     Indication: URETERIC CANCER
  3. GEMCITABINE [Suspect]
     Indication: URETERIC CANCER
     Dosage: 1000 MG/M2, FIRST 2 CYCLES
  4. GEMCITABINE [Suspect]
     Dosage: 750 MG/M2, IN 3 AND 4 CYCLES
  5. DOXORUBICIN [Suspect]
     Indication: BREAST CANCER
     Dosage: 50 MG/M2, 4 CYCLES
     Route: 042
  6. 5-FLUOROURACIL [Suspect]
     Indication: BREAST CANCER
     Dosage: 500 MG/M2, 4 CYCLES
     Route: 042
  7. DOCETAXEL [Suspect]
     Indication: BREAST CANCER
     Dosage: 75 MG/M2, 4 CYCLES
  8. CYCLOPHOSPHAMIDE [Suspect]
     Indication: BREAST CANCER
     Dosage: 500 MG/M2, FOUR CYCLES
     Route: 042
  9. ANASTROZOLE [Concomitant]
     Dosage: 1 MG, DAILY
  10. PREDNISONE [Concomitant]
     Indication: RENAL TRANSPLANT

REACTIONS (17)
  - Acute myeloid leukaemia [Fatal]
  - Sepsis [Recovered/Resolved]
  - Myelodysplastic syndrome transformation [Unknown]
  - Anaemia [Unknown]
  - Thrombocytopenia [Unknown]
  - Leukopenia [Unknown]
  - Clostridium difficile infection [Recovered/Resolved]
  - Urinary tract infection [Recovered/Resolved]
  - Systemic candida [Recovered/Resolved]
  - Breast cancer [Recovered/Resolved]
  - Renal failure acute [Recovered/Resolved]
  - Hydronephrosis [Recovered/Resolved]
  - Ureteric stenosis [Recovered/Resolved]
  - Ureteric cancer [Recovered/Resolved]
  - Lymphangiosis carcinomatosa [Recovered/Resolved]
  - Transitional cell carcinoma [Recovered/Resolved]
  - Neoplasm recurrence [Recovered/Resolved]
